FAERS Safety Report 5202779-8 (Version None)
Quarter: 2007Q1

REPORT INFORMATION
  Report Type: 
  Country: None (occurrence: None)
  Receive Date: 20070109
  Receipt Date: 20061227
  Transmission Date: 20070707
  Serious: Yes (Other)
  Sender: FDA-Public Use
  Company Number: US-SHR-US-2005-030191

PATIENT
  Age: 59 Year
  Sex: Female
  Weight: 86.168 kg

DRUGS (15)
  1. BETASERON [Suspect]
     Indication: SECONDARY PROGRESSIVE MULTIPLE SCLEROSIS
     Dosage: 8 MIU, EVERY 2D
     Route: 058
     Dates: start: 20050921, end: 20050901
  2. BETASERON [Suspect]
     Route: 058
     Dates: start: 20050628
  3. BETASERON [Suspect]
     Route: 058
     Dates: start: 20050826
  4. BETASERON [Suspect]
     Dosage: 8 MIU, EVERY 2D
     Route: 058
     Dates: start: 19931229
  5. NEURONTIN [Concomitant]
     Dosage: 600 MG, 3X/DAY
  6. CARBATROL [Concomitant]
     Dosage: UNK, UNK
  7. BENADRYL [Concomitant]
  8. METHOTREXATE [Concomitant]
     Dosage: 2.5 MG, 1X/WEEK
  9. DILANTIN [Concomitant]
     Dosage: 200 MG/D, UNK
  10. EFFEXOR [Concomitant]
     Dosage: 150 MG, 2X/DAY
  11. TEGRETOL [Concomitant]
     Dosage: 300 MG, 3X/DAY
  12. NITROFURMAC [Concomitant]
     Dosage: 50 MG/D, UNK
  13. ASPIRIN [Concomitant]
     Dosage: 81 MG/D, UNK
  14. WARFARIN SODIUM [Concomitant]
     Dosage: 5 MG, 5X/WEEK
  15. WARFARIN SODIUM [Concomitant]
     Dosage: 7.5 MG, 2X/WEEK

REACTIONS (4)
  - ADVERSE DRUG REACTION [None]
  - DELIRIUM FEBRILE [None]
  - INFLUENZA LIKE ILLNESS [None]
  - SOMNOLENCE [None]
